FAERS Safety Report 6289094-9 (Version None)
Quarter: 2009Q3

REPORT INFORMATION
  Report Type: 
  Country: None (occurrence: None)
  Receive Date: 20090729
  Receipt Date: 20090720
  Transmission Date: 20100115
  Serious: Yes (Hospitalization)
  Sender: FDA-Public Use
  Company Number: FR-GILEAD-2009-0023199

PATIENT
  Sex: Female

DRUGS (4)
  1. TRUVADA [Suspect]
     Indication: HIV INFECTION
     Route: 048
     Dates: start: 20080214
  2. KALETRA [Concomitant]
     Route: 048
     Dates: start: 20080214
  3. REBETOL [Concomitant]
     Route: 048
     Dates: start: 20080315
  4. VIRAFERONPEG [Concomitant]
     Route: 058
     Dates: start: 20080315

REACTIONS (3)
  - ANAEMIA [None]
  - CHEST PAIN [None]
  - ELECTROCARDIOGRAM ST SEGMENT ELEVATION [None]
